FAERS Safety Report 19393322 (Version 1)
Quarter: 2021Q2

REPORT INFORMATION
  Report Type: Spontaneous
  Country: US (occurrence: US)
  Receive Date: 20210608
  Receipt Date: 20210608
  Transmission Date: 20210717
  Serious: Yes (Other)
  Sender: FDA-Public Use
  Company Number: None

PATIENT
  Sex: Female

DRUGS (1)
  1. DOTTI [Suspect]
     Active Substance: ESTRADIOL

REACTIONS (2)
  - Scab [None]
  - Urticaria [None]
